FAERS Safety Report 9398068 (Version 1)
Quarter: 2013Q3

REPORT INFORMATION
  Report Type: Spontaneous
  Country: IL (occurrence: None)
  Receive Date: 20130709
  Receipt Date: 20130709
  Transmission Date: 20140515
  Serious: Yes (Hospitalization, Other)
  Sender: FDA-Public Use
  Company Number: FK201302319

PATIENT
  Sex: Female

DRUGS (3)
  1. OCTREOTIDE [Suspect]
     Indication: HYPERINSULINAEMIA
     Dosage: UG/KG, 9-12 UG/GK/DAY,
  2. DIAZOXIDE (DIAZOXIDE) [Concomitant]
  3. LEVOTHYROXINE (LEVOTHYROXINE) [Concomitant]

REACTIONS (3)
  - Hepatitis [None]
  - Upper respiratory tract infection [None]
  - Gastroenteritis rotavirus [None]
